FAERS Safety Report 7539684-8 (Version None)
Quarter: 2011Q2

REPORT INFORMATION
  Report Type: 
  Country: None (occurrence: None)
  Receive Date: 20110610
  Receipt Date: 20110412
  Transmission Date: 20111010
  Serious: Yes (Hospitalization)
  Sender: FDA-Public Use
  Company Number: US-BAYER-2011-009956

PATIENT
  Age: 36 Year
  Sex: Female
  Weight: 86.168 kg

DRUGS (7)
  1. YAZ [Suspect]
     Indication: PRODUCT USED FOR UNKNOWN INDICATION
     Dosage: UNK
     Dates: start: 20070201, end: 20090129
  2. NSAID'S [Concomitant]
     Dosage: UNK UNK, PRN
  3. SOMA [Concomitant]
  4. ULTRAM [Concomitant]
  5. ANTIBIOTICS [Concomitant]
  6. IMITREX [Concomitant]
     Indication: MIGRAINE
     Dosage: UNK
     Dates: start: 20051201
  7. GLUCOPHAGE [Concomitant]
     Indication: TYPE 2 DIABETES MELLITUS
     Dosage: UNK
     Dates: start: 20060601, end: 20090101

REACTIONS (3)
  - DEEP VEIN THROMBOSIS [None]
  - ANXIETY [None]
  - PAIN IN EXTREMITY [None]
